FAERS Safety Report 21332513 (Version 1)
Quarter: 2022Q3

REPORT INFORMATION
  Report Type: Spontaneous
  Country: US (occurrence: US)
  Receive Date: 20220914
  Receipt Date: 20220914
  Transmission Date: 20221026
  Serious: No
  Sender: FDA-Public Use
  Company Number: US-BoehringerIngelheim-2022-BI-192100

PATIENT
  Sex: Female

DRUGS (1)
  1. SPIRIVA [Suspect]
     Active Substance: TIOTROPIUM BROMIDE MONOHYDRATE
     Indication: Product used for unknown indication

REACTIONS (6)
  - Lung disorder [Unknown]
  - Nasal congestion [Unknown]
  - Gait inability [Unknown]
  - Dyspnoea [Unknown]
  - Arthritis [Unknown]
  - Device use confusion [Unknown]
